FAERS Safety Report 24213522 (Version 6)
Quarter: 2024Q4

REPORT INFORMATION
  Report Type: Spontaneous
  Country: US (occurrence: US)
  Receive Date: 20240815
  Receipt Date: 20241210
  Transmission Date: 20250114
  Serious: Yes (Hospitalization)
  Sender: PTC THERAPEUTICS
  Company Number: US-PTC THERAPEUTICS INC.-US-2024PTC001055

PATIENT
  Age: 13 Year
  Sex: Male
  Weight: 29.8 kg

DRUGS (1)
  1. EMFLAZA [Suspect]
     Active Substance: DEFLAZACORT
     Indication: Duchenne muscular dystrophy
     Dosage: 27 MG, QD
     Route: 048
     Dates: start: 20240210, end: 20240801

REACTIONS (3)
  - Schwannoma [Recovered/Resolved]
  - Vertebral column mass [Recovered/Resolved]
  - Pain [Recovered/Resolved]

NARRATIVE: CASE EVENT DATE: 20240726
